FAERS Safety Report 15298577 (Version 1)
Quarter: 2018Q3

REPORT INFORMATION
  Report Type: Spontaneous
  Country: FR (occurrence: FR)
  Receive Date: 20180820
  Receipt Date: 20180820
  Transmission Date: 20181010
  Serious: Yes (Death, Hospitalization)
  Sender: FDA-Public Use
  Company Number: FR-PURDUE PHARMA-GBR-2016-0037322

PATIENT
  Age: 86 Year
  Sex: Female

DRUGS (10)
  1. CAELYX                             /00330904/ [Concomitant]
     Active Substance: DOXORUBICIN HYDROCHLORIDE
     Dosage: UNK
     Route: 042
     Dates: end: 20160307
  2. CALCIPARINE [Concomitant]
     Active Substance: HEPARIN CALCIUM
     Dosage: BID (1/0/1)
     Route: 058
     Dates: start: 20160331, end: 20160416
  3. PANTOPRAZOLE [Suspect]
     Active Substance: PANTOPRAZOLE
     Indication: PRODUCT USED FOR UNKNOWN INDICATION
     Dosage: 40 MG, DAILY
     Route: 042
     Dates: start: 20160405, end: 20160414
  4. DOLIPRANE [Concomitant]
     Active Substance: ACETAMINOPHEN
     Dosage: UNK
     Route: 048
     Dates: start: 20160402, end: 20160416
  5. MIDAZOLAM [Suspect]
     Active Substance: MIDAZOLAM HYDROCHLORIDE
     Indication: PRODUCT USED FOR UNKNOWN INDICATION
     Dosage: 30 MG, DAILY
     Route: 042
     Dates: start: 20160411, end: 20160416
  6. PIPERACILLIN [Suspect]
     Active Substance: PIPERACILLIN
     Indication: PRODUCT USED FOR UNKNOWN INDICATION
     Dosage: TID
     Route: 048
     Dates: start: 20160406, end: 20160413
  7. SERESTA [Suspect]
     Active Substance: OXAZEPAM
     Indication: PRODUCT USED FOR UNKNOWN INDICATION
     Dosage: 10 MG, DAILY
     Route: 048
     Dates: start: 20160407, end: 20160416
  8. OXYNORMORO COMPRIME ORODISPERSIBLE 5 MG [Suspect]
     Active Substance: OXYCODONE HYDROCHLORIDE
     Indication: PRODUCT USED FOR UNKNOWN INDICATION
     Dosage: 5 MG, DAILY
     Route: 048
     Dates: start: 20160407, end: 20160416
  9. TAZOBACTAM [Suspect]
     Active Substance: TAZOBACTAM
     Indication: PRODUCT USED FOR UNKNOWN INDICATION
     Dosage: UNK UNK, TID
     Route: 048
     Dates: start: 20160406, end: 20160413
  10. LASILIX                            /00032601/ [Suspect]
     Active Substance: FUROSEMIDE
     Indication: PRODUCT USED FOR UNKNOWN INDICATION
     Dosage: 40 MG, BID (1/1/0)
     Route: 048
     Dates: start: 20160412, end: 20160416

REACTIONS (5)
  - Cardiac failure [Fatal]
  - Acute kidney injury [Not Recovered/Not Resolved]
  - Haematuria [Not Recovered/Not Resolved]
  - Proteinuria [Not Recovered/Not Resolved]
  - Anuria [Not Recovered/Not Resolved]

NARRATIVE: CASE EVENT DATE: 20160413
